FAERS Safety Report 4906695-8 (Version None)
Quarter: 2006Q1

REPORT INFORMATION
  Report Type: 
  Country: None (occurrence: None)
  Receive Date: 20060206
  Receipt Date: 20060130
  Transmission Date: 20060701
  Serious: No
  Sender: FDA-Public Use
  Company Number: TAP2006Q00185

PATIENT
  Age: 24 Year
  Sex: Female
  Weight: 50 kg

DRUGS (3)
  1. LUPRON DEPOT-3 [Suspect]
     Indication: ENDOMETRIOSIS
     Dosage: 22.5 MG, 1 IN 3 M, INTRAMUSCULAR
     Route: 030
     Dates: start: 20051014
  2. AYGESTIN [Concomitant]
  3. YASMIN (DROSPIRENONE W/ETHINYLESTRADIOL) [Concomitant]

REACTIONS (8)
  - ABDOMINAL PAIN [None]
  - DISEASE RECURRENCE [None]
  - DYSPEPSIA [None]
  - ENDOMETRIOSIS [None]
  - EROSIVE OESOPHAGITIS [None]
  - IMPAIRED GASTRIC EMPTYING [None]
  - PYREXIA [None]
  - VOMITING [None]
